FAERS Safety Report 12210682 (Version 1)
Quarter: 2016Q1

REPORT INFORMATION
  Report Type: Spontaneous
  Country: US (occurrence: None)
  Receive Date: 20160324
  Receipt Date: 20160324
  Transmission Date: 20160526
  Serious: Yes (Hospitalization)
  Sender: FDA-Public Use
  Company Number: None

PATIENT
  Age: 58 Year
  Sex: Male
  Weight: 77.11 kg

DRUGS (1)
  1. LEVAQUIN [Suspect]
     Active Substance: LEVOFLOXACIN
     Indication: NASOPHARYNGITIS
     Dosage: 500 M.. 1 PILL ONCE A DAY MOUTH
     Route: 048
     Dates: start: 20160125, end: 20160127

REACTIONS (15)
  - Dizziness [None]
  - Fall [None]
  - Anxiety [None]
  - Cardiac pacemaker insertion [None]
  - Contusion [None]
  - Depression [None]
  - Tremor [None]
  - Insomnia [None]
  - Loss of consciousness [None]
  - Malaise [None]
  - Cardiac disorder [None]
  - Hypophagia [None]
  - Laceration [None]
  - Epistaxis [None]
  - Vital functions abnormal [None]

NARRATIVE: CASE EVENT DATE: 20160126
